FAERS Safety Report 10440355 (Version 1)
Quarter: 2014Q3

REPORT INFORMATION
  Report Type: Report from Study
  Country: US (occurrence: US)
  Receive Date: 20140909
  Receipt Date: 20140909
  Transmission Date: 20150326
  Serious: Yes (Other)
  Sender: FDA-Public Use
  Company Number: US-ORION CORPORATION ORION PHARMA-ENTC2014-0325

PATIENT
  Sex: Female

DRUGS (18)
  1. STALEVO [Suspect]
     Active Substance: CARBIDOPA\ENTACAPONE\LEVODOPA
     Dosage: 150 MG IN NOON AND 6 PM AND 200 MG IN MORNING AND AT NIGHT
     Route: 065
     Dates: start: 1999
  2. AMLODIPINE BESYLATE. [Concomitant]
     Active Substance: AMLODIPINE BESYLATE
     Route: 065
  3. FUROSEMIDE. [Concomitant]
     Active Substance: FUROSEMIDE
     Route: 065
  4. SYNTHROID [Concomitant]
     Active Substance: LEVOTHYROXINE SODIUM
     Route: 065
  5. EPLERENONE. [Concomitant]
     Active Substance: EPLERENONE
     Route: 065
  6. LABETALOL [Concomitant]
     Active Substance: LABETALOL\LABETALOL HYDROCHLORIDE
     Route: 065
  7. STALEVO [Suspect]
     Active Substance: CARBIDOPA\ENTACAPONE\LEVODOPA
     Route: 048
  8. TEGRETOL [Suspect]
     Active Substance: CARBAMAZEPINE
     Dosage: 1 TABLET IM MORNING AND 2 TABLETS AT NIGHT
     Route: 048
  9. CARBIDOPA. [Concomitant]
     Active Substance: CARBIDOPA
     Route: 065
  10. EPLERENONE. [Concomitant]
     Active Substance: EPLERENONE
     Route: 065
  11. POTASSIUM CHLORIDE. [Concomitant]
     Active Substance: POTASSIUM CHLORIDE
     Route: 065
  12. STALEVO [Suspect]
     Active Substance: CARBIDOPA\ENTACAPONE\LEVODOPA
     Route: 048
  13. TEGRETOL [Suspect]
     Active Substance: CARBAMAZEPINE
     Route: 065
     Dates: start: 1996
  14. VALTURNA [Concomitant]
     Active Substance: ALISKIREN HEMIFUMARATE\VALSARTAN
     Route: 065
  15. MINOXIDIL. [Concomitant]
     Active Substance: MINOXIDIL
     Route: 065
  16. CLONIDINE. [Concomitant]
     Active Substance: CLONIDINE
     Route: 065
  17. PREMARIN [Concomitant]
     Active Substance: ESTROGENS, CONJUGATED
     Route: 065
  18. OMEPRAZOLE. [Concomitant]
     Active Substance: OMEPRAZOLE
     Route: 065

REACTIONS (2)
  - Parkinson^s disease [Unknown]
  - Hypertension [Unknown]

NARRATIVE: CASE EVENT DATE: 1999
